FAERS Safety Report 13605090 (Version 1)
Quarter: 2017Q2

REPORT INFORMATION
  Report Type: Spontaneous
  Country: US (occurrence: US)
  Receive Date: 20170601
  Receipt Date: 20170601
  Transmission Date: 20170830
  Serious: Yes (Death, Life-Threatening, Hospitalization, Disabling, Other)
  Sender: FDA-Public Use
  Company Number: None

PATIENT
  Age: 67 Year
  Sex: Female
  Weight: 74.84 kg

DRUGS (1)
  1. NEXIUM [Suspect]
     Active Substance: ESOMEPRAZOLE MAGNESIUM
     Indication: DYSPEPSIA
     Dosage: ?          QUANTITY:? I] LAT/L4?;?
     Route: 048
     Dates: start: 20120928, end: 20150905

REACTIONS (4)
  - Haematochezia [None]
  - Arthralgia [None]
  - Dialysis [None]
  - Nephritis [None]

NARRATIVE: CASE EVENT DATE: 20140406
